FAERS Safety Report 10017790 (Version 1)
Quarter: 2014Q1

REPORT INFORMATION
  Report Type: Spontaneous
  Country: US (occurrence: US)
  Receive Date: 20140318
  Receipt Date: 20140318
  Transmission Date: 20141002
  Serious: No
  Sender: FDA-Public Use
  Company Number: US-BRISTOL-MYERS SQUIBB COMPANY-18849257

PATIENT
  Age: 76 Year
  Sex: Male
  Weight: 104.31 kg

DRUGS (4)
  1. ERBITUX [Suspect]
     Indication: COLON CANCER
     Dosage: START DATE : ABOUT A MONTHS AGO.
     Dates: start: 2013
  2. ERBITUX [Suspect]
     Indication: HEPATIC CANCER METASTATIC
     Dosage: START DATE : ABOUT A MONTHS AGO.
     Dates: start: 2013
  3. RESVERATROL [Concomitant]
  4. BIOTIN [Concomitant]

REACTIONS (2)
  - Rash [Recovering/Resolving]
  - Functional gastrointestinal disorder [Recovering/Resolving]
